FAERS Safety Report 20039673 (Version 1)
Quarter: 2021Q4

REPORT INFORMATION
  Report Type: Other
  Country: None (occurrence: MY)
  Receive Date: 20211106
  Receipt Date: 20211106
  Transmission Date: 20220304
  Serious: Yes (Death, Hospitalization, Other)
  Sender: FDA-Public Use
  Company Number: MY-FDC LIMITED-2121544

PATIENT
  Age: 18 Year
  Sex: Male

DRUGS (2)
  1. CIPROFLOXACIN [Suspect]
     Active Substance: CIPROFLOXACIN
     Indication: Mycobacterial infection
     Route: 042
  2. AMIKACIN SULFATE [Concomitant]
     Active Substance: AMIKACIN SULFATE
     Route: 042

REACTIONS (3)
  - Liver injury [Fatal]
  - Treatment failure [Fatal]
  - Drug resistance [Fatal]
